FAERS Safety Report 5763878-5 (Version None)
Quarter: 2008Q2

REPORT INFORMATION
  Report Type: 
  Country: None (occurrence: None)
  Receive Date: 20080606
  Receipt Date: 20080606
  Transmission Date: 20081010
  Serious: Yes (Life-Threatening)
  Sender: FDA-Public Use
  Company Number: None

PATIENT
  Sex: Male
  Weight: 109.3169 kg

DRUGS (1)
  1. HUMIRA [Suspect]
     Indication: RHEUMATOID ARTHRITIS
     Dosage: 1 INJECTION ONCE EACH 2 WEEKS SQ (DURATION: 10-12 MOS)
     Route: 058
     Dates: start: 20030101, end: 20040101

REACTIONS (1)
  - HODGKIN'S DISEASE [None]
